FAERS Safety Report 19627170 (Version 1)
Quarter: 2021Q3

REPORT INFORMATION
  Report Type: Spontaneous
  Country: FR (occurrence: FR)
  Receive Date: 20210728
  Receipt Date: 20210728
  Transmission Date: 20211014
  Serious: Yes (Disabling)
  Sender: FDA-Public Use
  Company Number: FR-TAKEDA-2021TEU006538

PATIENT
  Age: 56 Year
  Sex: Female

DRUGS (5)
  1. GUTRON [Suspect]
     Active Substance: MIDODRINE HYDROCHLORIDE
     Indication: MULTIPLE SCLEROSIS
     Dosage: 2.5 MILLIGRAM, QD
     Route: 048
  2. GILENYA [Suspect]
     Active Substance: FINGOLIMOD HYDROCHLORIDE
     Indication: MULTIPLE SCLEROSIS
     Dosage: 0.25 MILLIGRAM, QD
     Route: 048
     Dates: start: 20200622
  3. LIORESAL [Suspect]
     Active Substance: BACLOFEN
     Indication: MULTIPLE SCLEROSIS
     Dosage: 10 MILLIGRAM, QD
     Route: 048
  4. GABAPENTINE [Concomitant]
     Active Substance: GABAPENTIN
     Dosage: UNK
  5. ACIDE ALENDRONIQUE/CHOLECALCIFEROL (VITAMINE D3) ZENTIVA [Concomitant]
     Dosage: UNK

REACTIONS (3)
  - Dysaesthesia [Not Recovered/Not Resolved]
  - Back pain [Not Recovered/Not Resolved]
  - Arthralgia [Not Recovered/Not Resolved]

NARRATIVE: CASE EVENT DATE: 202006
